FAERS Safety Report 10335295 (Version 1)
Quarter: 2014Q3

REPORT INFORMATION
  Report Type: Spontaneous
  Country: US (occurrence: US)
  Receive Date: 20140723
  Receipt Date: 20140723
  Transmission Date: 20150326
  Serious: No
  Sender: FDA-Public Use
  Company Number: US-ABBVIE-13P-163-1121424-00

PATIENT
  Sex: Female
  Weight: 47.67 kg

DRUGS (2)
  1. SYNTHROID [Suspect]
     Active Substance: LEVOTHYROXINE SODIUM
     Indication: HYPOTHYROIDISM
     Dosage: FOR APPROX 5 YEARS OR LONGER
  2. ARMOUR THYROID [Suspect]
     Active Substance: THYROID, PORCINE\THYROID, UNSPECIFIED
     Indication: PRODUCT USED FOR UNKNOWN INDICATION

REACTIONS (6)
  - Depression [Recovering/Resolving]
  - Feeling abnormal [Not Recovered/Not Resolved]
  - Lethargy [Recovering/Resolving]
  - Fatigue [Unknown]
  - Fatigue [Recovering/Resolving]
  - Feeling abnormal [Recovered/Resolved]
